FAERS Safety Report 5956840-0 (Version None)
Quarter: 2008Q4

REPORT INFORMATION
  Report Type: 
  Country: None (occurrence: None)
  Receive Date: 20081114
  Receipt Date: 20081114
  Transmission Date: 20090506
  Serious: Yes (Life-Threatening)
  Sender: FDA-Public Use
  Company Number: None

PATIENT
  Age: 22 Year
  Sex: Male
  Weight: 78.4723 kg

DRUGS (2)
  1. SERTRALINE HCL [Suspect]
     Indication: DEPRESSION
     Dosage: 50 TABLET AM PO
     Route: 048
     Dates: start: 20080801, end: 20081113
  2. GEODON [Suspect]
     Dosage: 20 MG TABLETS PM PO
     Route: 048
     Dates: start: 20080601, end: 20081113

REACTIONS (7)
  - ABNORMAL BEHAVIOUR [None]
  - BLOOD GLUCOSE DECREASED [None]
  - CONVULSION [None]
  - DYSKINESIA [None]
  - NERVOUSNESS [None]
  - TREMOR [None]
  - WEIGHT DECREASED [None]
